FAERS Safety Report 9751448 (Version 2)
Quarter: 2014Q1

REPORT INFORMATION
  Report Type: Spontaneous
  Country: US (occurrence: US)
  Receive Date: 20131212
  Receipt Date: 20140312
  Transmission Date: 20141002
  Serious: No
  Sender: FDA-Public Use
  Company Number: US-BIOGENIDEC-2013BI101670

PATIENT
  Age: 63 Year
  Sex: Female

DRUGS (18)
  1. TECFIDERA [Suspect]
     Indication: MULTIPLE SCLEROSIS
     Route: 048
     Dates: start: 20131001
  2. TECFIDERA [Suspect]
     Indication: MULTIPLE SCLEROSIS
     Route: 048
     Dates: end: 20140212
  3. TECFIDERA [Suspect]
     Indication: MULTIPLE SCLEROSIS
     Route: 048
     Dates: start: 20131007, end: 20140214
  4. BENADRYL [Concomitant]
     Indication: EAR PAIN
  5. BENADRYL [Concomitant]
     Indication: RASH PAPULAR
  6. BENADRYL [Concomitant]
     Indication: NECK PAIN
  7. BENADRYL [Concomitant]
     Indication: PAIN
  8. BENADRYL [Concomitant]
     Indication: PAIN IN EXTREMITY
  9. ASA [Concomitant]
     Indication: RASH PAPULAR
  10. ASA [Concomitant]
     Indication: EAR PAIN
  11. ASA [Concomitant]
     Indication: NECK PAIN
  12. ASA [Concomitant]
     Indication: PAIN
  13. ASA [Concomitant]
     Indication: PAIN IN EXTREMITY
  14. ZYRTEC [Concomitant]
     Indication: RASH PAPULAR
  15. ZYRTEC [Concomitant]
     Indication: EAR PAIN
  16. ZYRTEC [Concomitant]
     Indication: NECK PAIN
  17. ZYRTEC [Concomitant]
     Indication: PAIN
  18. ZYRTEC [Concomitant]
     Indication: PAIN IN EXTREMITY

REACTIONS (15)
  - Ear pain [Unknown]
  - Neck pain [Unknown]
  - Pain [Unknown]
  - Pain in extremity [Unknown]
  - Insomnia [Recovered/Resolved]
  - Asthenia [Unknown]
  - Ear discomfort [Recovered/Resolved]
  - Burning sensation [Recovered/Resolved]
  - Pruritus generalised [Recovered/Resolved]
  - Rash papular [Unknown]
  - Flushing [Recovered/Resolved]
  - Rash pruritic [Recovered/Resolved]
  - Feeling hot [Recovered/Resolved]
  - Diarrhoea [Recovered/Resolved]
  - Nausea [Recovered/Resolved]
